FAERS Safety Report 10904102 (Version 1)
Quarter: 2015Q1

REPORT INFORMATION
  Report Type: Spontaneous
  Country: CA (occurrence: None)
  Receive Date: 20150306
  Receipt Date: 20150306
  Transmission Date: 20150721
  Serious: Yes (Hospitalization, Disabling)
  Sender: FDA-Public Use
  Company Number: 2015CA0118

PATIENT
  Sex: Male

DRUGS (2)
  1. CORTICOSTEROIDS (CORTICOSTEROIDS) [Concomitant]
  2. ANAKINRA (ANAKINRA) [Suspect]
     Active Substance: ANAKINRA
     Indication: JUVENILE IDIOPATHIC ARTHRITIS

REACTIONS (1)
  - Colitis [None]
